FAERS Safety Report 17635513 (Version 1)
Quarter: 2020Q2

REPORT INFORMATION
  Report Type: Spontaneous
  Country: GB (occurrence: GB)
  Receive Date: 20200407
  Receipt Date: 20200407
  Transmission Date: 20200713
  Serious: Yes (Hospitalization)
  Sender: FDA-Public Use
  Company Number: GB-TEVA-2020-GB-1219838

PATIENT
  Age: 83 Year
  Sex: Female

DRUGS (6)
  1. ACETYLSALICYLIC ACID [Suspect]
     Active Substance: ASPIRIN
     Dosage: 75 MG
     Route: 048
     Dates: end: 20200127
  2. ATORVASTATIN [Concomitant]
     Active Substance: ATORVASTATIN
     Dosage: NIGHT, 10 MG
     Route: 048
  3. PARACETAMOL [Concomitant]
     Active Substance: ACETAMINOPHEN
     Dosage: 4 DOSAGE FORMS DAILY; 500MG/1G, 4 TIMES A DAY, AS NEEDED.
     Route: 048
  4. OMEPRAZOLE DELAYED RELEASE CAPSULES,10 MG, 20 MG AND 30 MG [Suspect]
     Active Substance: OMEPRAZOLE
     Dosage: MORNING, 20 MG
     Route: 048
  5. AMLODIPINE [Concomitant]
     Active Substance: AMLODIPINE BESYLATE
     Dosage: MORNING, 10 MG
     Route: 048
  6. CANDESARTAN. [Concomitant]
     Active Substance: CANDESARTAN
     Dosage: MORNING, 2 MG
     Route: 048

REACTIONS (5)
  - Lethargy [Unknown]
  - Constipation [Unknown]
  - Anaemia [Recovering/Resolving]
  - Gastrointestinal haemorrhage [Recovering/Resolving]
  - Treatment failure [Recovering/Resolving]

NARRATIVE: CASE EVENT DATE: 20200127
